FAERS Safety Report 20819118 (Version 8)
Quarter: 2022Q3

REPORT INFORMATION
  Report Type: Spontaneous
  Country: ES (occurrence: ES)
  Receive Date: 20220512
  Receipt Date: 20220810
  Transmission Date: 20221027
  Serious: Yes (Life-Threatening, Other)
  Sender: FDA-Public Use
  Company Number: ES-PFIZER INC-202200654509

PATIENT
  Age: 37 Year
  Sex: Female

DRUGS (2)
  1. VENLAFAXINE HYDROCHLORIDE [Suspect]
     Active Substance: VENLAFAXINE HYDROCHLORIDE
     Indication: Generalised anxiety disorder
     Dosage: 150 MG
     Dates: start: 2013
  2. MIRTAZAPINE [Concomitant]
     Active Substance: MIRTAZAPINE
     Dosage: UNK
     Route: 060

REACTIONS (46)
  - Suicidal ideation [Unknown]
  - Weight decreased [Unknown]
  - Dysphagia [Unknown]
  - Malaise [Unknown]
  - Anxiety [Unknown]
  - Decreased appetite [Unknown]
  - Skin disorder [Unknown]
  - Sleep disorder [Unknown]
  - Coating in mouth [Unknown]
  - Skin discolouration [Unknown]
  - Dry skin [Unknown]
  - Gastrointestinal disorder [Unknown]
  - Hyperhidrosis [Unknown]
  - Asthenia [Unknown]
  - Feeling hot [Unknown]
  - Nervous system disorder [Unknown]
  - Acne [Unknown]
  - Wrong technique in product usage process [Unknown]
  - Toxicity to various agents [Unknown]
  - Bedridden [Unknown]
  - Body fat disorder [Unknown]
  - Chills [Unknown]
  - Choking sensation [Unknown]
  - Thirst decreased [Unknown]
  - Bone disorder [Unknown]
  - Hair disorder [Unknown]
  - Hormone level abnormal [Unknown]
  - Pallor [Unknown]
  - Nail discolouration [Unknown]
  - Nail growth abnormal [Unknown]
  - Impaired healing [Unknown]
  - Muscle disorder [Unknown]
  - Depression [Unknown]
  - Drug tolerance [Unknown]
  - Mental disorder due to a general medical condition [Unknown]
  - Blood glucose abnormal [Unknown]
  - Quality of life decreased [Unknown]
  - Coagulopathy [Unknown]
  - Lacrimation decreased [Unknown]
  - Condition aggravated [Unknown]
  - Heart rate increased [Unknown]
  - Memory impairment [Unknown]
  - Vision blurred [Unknown]
  - Muscular weakness [Unknown]
  - Palpitations [Unknown]
  - Crying [Unknown]

NARRATIVE: CASE EVENT DATE: 20220801
